FAERS Safety Report 4949811-4 (Version None)
Quarter: 2006Q1

REPORT INFORMATION
  Report Type: 
  Country: None (occurrence: None)
  Receive Date: 20060315
  Receipt Date: 20060308
  Transmission Date: 20060701
  Serious: Yes (Death, Life-Threatening, Hospitalization)
  Sender: FDA-Public Use
  Company Number: HQ5394119NOV2002

PATIENT
  Age: 49 Year
  Sex: Male
  Weight: 77 kg

DRUGS (2)
  1. MYLOTARG [Suspect]
     Indication: ACUTE MYELOID LEUKAEMIA
     Dosage: 17 MG 1X PER 1 DAY, INTRAVENOUS  ; 15 MG 1X PER 1 DAY, INTRAVENOUS
     Route: 042
     Dates: start: 20021002, end: 20021002
  2. MYLOTARG [Suspect]
     Indication: ACUTE MYELOID LEUKAEMIA
     Dosage: 17 MG 1X PER 1 DAY, INTRAVENOUS  ; 15 MG 1X PER 1 DAY, INTRAVENOUS
     Route: 042
     Dates: start: 20021016, end: 20021016

REACTIONS (17)
  - ALANINE AMINOTRANSFERASE INCREASED [None]
  - ASPARTATE AMINOTRANSFERASE INCREASED [None]
  - ASPERGILLOSIS [None]
  - BLOOD ALKALINE PHOSPHATASE INCREASED [None]
  - BLOOD BILIRUBIN INCREASED [None]
  - ENTEROCOCCAL BACTERAEMIA [None]
  - EPISTAXIS [None]
  - INFUSION RELATED REACTION [None]
  - MOUTH HAEMORRHAGE [None]
  - PAIN [None]
  - PNEUMONIA FUNGAL [None]
  - PYREXIA [None]
  - RENAL FAILURE [None]
  - RESPIRATORY FAILURE [None]
  - SEPSIS [None]
  - VENOOCCLUSIVE LIVER DISEASE [None]
  - VENTRICULAR TACHYCARDIA [None]
